APPROVED DRUG PRODUCT: BACLOFEN
Active Ingredient: BACLOFEN
Strength: 0.05MG/ML
Dosage Form/Route: INJECTABLE;INTRATHECAL
Application: A210777 | Product #001 | TE Code: AP
Applicant: MAIA PHARMACEUTICALS INC
Approved: Jan 15, 2021 | RLD: No | RS: No | Type: RX